FAERS Safety Report 8433063-7 (Version None)
Quarter: 2012Q2

REPORT INFORMATION
  Report Type: 
  Country: None (occurrence: None)
  Receive Date: 20120613
  Receipt Date: 20120608
  Transmission Date: 20120825
  Serious: Yes (Hospitalization)
  Sender: FDA-Public Use
  Company Number: FR-SP-2012-02743

PATIENT
  Sex: Male

DRUGS (1)
  1. IMMUCYST [Suspect]
     Indication: BLADDER CANCER
     Route: 043
     Dates: start: 20110517, end: 20120124

REACTIONS (6)
  - CHILLS [None]
  - RETINAL DISORDER [None]
  - HEAT RASH [None]
  - HEPATITIS [None]
  - PYREXIA [None]
  - BOVINE TUBERCULOSIS [None]
